FAERS Safety Report 17619023 (Version 3)
Quarter: 2020Q2

REPORT INFORMATION
  Report Type: Report from Study
  Country: US (occurrence: US)
  Receive Date: 20200402
  Receipt Date: 20200410
  Transmission Date: 20200713
  Serious: Yes (Other)
  Sender: FDA-Public Use
  Company Number: US-BAUSCH-BL-2020-009207

PATIENT
  Age: 75 Year
  Sex: Female

DRUGS (2)
  1. UCERIS [Suspect]
     Active Substance: BUDESONIDE
     Indication: COLITIS ULCERATIVE
     Dosage: STARTED IN 2008 OR 2009 (APPROXIMATELY 6 YEARS AGO FROM DATE OF THIS REPORT)
     Route: 048
  2. UCERIS [Suspect]
     Active Substance: BUDESONIDE
     Dosage: STRETCHING BY TAKING EVERY OTHER DAY
     Route: 048
     Dates: end: 20200322

REACTIONS (6)
  - Insurance issue [Unknown]
  - Abdominal pain [Not Recovered/Not Resolved]
  - Intentional product use issue [Unknown]
  - Colon cancer [Unknown]
  - Diarrhoea [Not Recovered/Not Resolved]
  - Therapy interrupted [Unknown]

NARRATIVE: CASE EVENT DATE: 2020
